FAERS Safety Report 12412074 (Version 1)
Quarter: 2016Q2

REPORT INFORMATION
  Report Type: Spontaneous
  Country: US (occurrence: US)
  Receive Date: 20160527
  Receipt Date: 20160527
  Transmission Date: 20160815
  Serious: No
  Sender: FDA-Public Use
  Company Number: US-ENDO PHARMACEUTICALS INC.-2016-002563

PATIENT
  Age: 80 Year
  Sex: Female
  Weight: 74.91 kg

DRUGS (1)
  1. TELMISARTAN AND HYDROCHLOROTHIAZIDE 40MG/12.5MG TABLETS [Suspect]
     Active Substance: HYDROCHLOROTHIAZIDE\TELMISARTAN
     Indication: HYPERTENSION
     Route: 048
     Dates: start: 20160208

REACTIONS (4)
  - Blood pressure systolic increased [None]
  - Drug effect decreased [Not Recovered/Not Resolved]
  - Stress [Not Recovered/Not Resolved]
  - Psoriasis [Not Recovered/Not Resolved]

NARRATIVE: CASE EVENT DATE: 201602
